FAERS Safety Report 25485568 (Version 2)
Quarter: 2025Q3

REPORT INFORMATION
  Report Type: Spontaneous
  Country: US (occurrence: US)
  Receive Date: 20250626
  Receipt Date: 20250711
  Transmission Date: 20251020
  Serious: Yes (Other)
  Sender: APELLIS PHARMACEUTICALS
  Company Number: US-APELLIS-2025-APL-0001314

PATIENT

DRUGS (1)
  1. SYFOVRE [Suspect]
     Active Substance: PEGCETACOPLAN
     Indication: Dry age-related macular degeneration
     Route: 031
     Dates: start: 20250516, end: 20250516

REACTIONS (9)
  - Idiopathic orbital inflammation [Not Recovered/Not Resolved]
  - Vitritis [Not Recovered/Not Resolved]
  - Vision blurred [Not Recovered/Not Resolved]
  - Conjunctivitis [Not Recovered/Not Resolved]
  - Ocular hyperaemia [Unknown]
  - Eye swelling [Not Recovered/Not Resolved]
  - Vitreous floaters [Not Recovered/Not Resolved]
  - Anterior chamber cell [Not Recovered/Not Resolved]
  - Vitreal cells [Not Recovered/Not Resolved]

NARRATIVE: CASE EVENT DATE: 20250602
